FAERS Safety Report 11289991 (Version 1)
Quarter: 2015Q3

REPORT INFORMATION
  Report Type: Other
  Country: GB (occurrence: GB)
  Receive Date: 20150721
  Receipt Date: 20150721
  Transmission Date: 20151125
  Serious: Yes (Other)
  Sender: FDA-Public Use
  Company Number: GB-SHIRE-GB201508011

PATIENT
  Age: 14 Year
  Sex: Female

DRUGS (1)
  1. VPRIV [Suspect]
     Active Substance: VELAGLUCERASE ALFA
     Indication: GAUCHER^S DISEASE
     Dosage: 3600 UNITS, 1X/2WKS, FORTNIGHTLY
     Route: 041

REACTIONS (3)
  - Depressed mood [Unknown]
  - Self injurious behaviour [Unknown]
  - Tearfulness [Unknown]

NARRATIVE: CASE EVENT DATE: 201506
